FAERS Safety Report 8470466 (Version 3)
Quarter: 2013Q2

REPORT INFORMATION
  Report Type: Spontaneous
  Country: US (occurrence: US)
  Receive Date: 20120321
  Receipt Date: 20130513
  Transmission Date: 20140414
  Serious: Yes (Other)
  Sender: FDA-Public Use
  Company Number: US-CELGENEUS-163-21880-12031479

PATIENT
  Age: 66 Year
  Sex: Female
  Weight: 85 kg

DRUGS (1)
  1. REVLIMID [Suspect]
     Indication: PLASMA CELL MYELOMA
     Dosage: 25 MILLIGRAM
     Route: 048
     Dates: start: 20100604

REACTIONS (7)
  - Gallbladder disorder [Unknown]
  - Rib fracture [Unknown]
  - Fall [Unknown]
  - Sinus headache [Unknown]
  - Ear discomfort [Unknown]
  - Joint injury [Unknown]
  - Rhinitis [Unknown]
